FAERS Safety Report 15494211 (Version 2)
Quarter: 2019Q1

REPORT INFORMATION
  Report Type: Report from Study
  Country: BE (occurrence: BE)
  Receive Date: 20181012
  Receipt Date: 20190213
  Transmission Date: 20190417
  Serious: Yes (Hospitalization, Other)
  Sender: FDA-Public Use
  Company Number: BE-PFIZER INC-2018407174

PATIENT
  Age: 73 Year
  Sex: Male
  Weight: 83.7 kg

DRUGS (8)
  1. FLUOROURACIL. [Suspect]
     Active Substance: FLUOROURACIL
     Indication: COLORECTAL CANCER METASTATIC
     Dosage: 1 UNK, CYCLIC (EVERY TWO WEEKS)
     Route: 042
     Dates: start: 20171121
  2. DENOSUMAB [Concomitant]
     Active Substance: DENOSUMAB
     Dosage: UNK
     Route: 065
     Dates: start: 20180214, end: 20180214
  3. LEUCOVORIN [CALCIUM FOLINATE] [Suspect]
     Active Substance: LEUCOVORIN
     Indication: COLORECTAL CANCER METASTATIC
     Dosage: 1 UNK, CYCLIC (EVERY 2 WEEKS)
     Route: 042
     Dates: start: 20171121
  4. FUROSEMIDE. [Concomitant]
     Active Substance: FUROSEMIDE
     Dosage: UNK
     Route: 065
     Dates: start: 20180205
  5. BEVACIZUMAB. [Suspect]
     Active Substance: BEVACIZUMAB
     Indication: COLORECTAL CANCER METASTATIC
     Dosage: 1 UNK, CYCLIC (EVERY 2 WEEKS)
     Route: 042
  6. DENOSUMAB [Concomitant]
     Active Substance: DENOSUMAB
     Dosage: UNK
     Route: 065
     Dates: start: 20171227, end: 20171227
  7. BISOPROLOL [Concomitant]
     Active Substance: BISOPROLOL
     Indication: COLORECTAL CANCER METASTATIC
     Dosage: UNK
     Route: 065
     Dates: start: 20130104
  8. OXALIPLATIN. [Suspect]
     Active Substance: OXALIPLATIN
     Indication: COLORECTAL CANCER METASTATIC
     Dosage: 1 UNK, CYCLIC (EVERY TWO WEEKS)
     Route: 042
     Dates: start: 20171121

REACTIONS (8)
  - Anaemia [Not Recovered/Not Resolved]
  - Infusion related reaction [Recovered/Resolved]
  - Pruritus [Not Recovered/Not Resolved]
  - Neutropenia [Recovered/Resolved]
  - Cataract [Not Recovered/Not Resolved]
  - Dry skin [Not Recovered/Not Resolved]
  - Hepatic failure [Not Recovered/Not Resolved]
  - Inflammation [Recovered/Resolved]

NARRATIVE: CASE EVENT DATE: 20171220
